FAERS Safety Report 11617044 (Version 1)
Quarter: 2015Q4

REPORT INFORMATION
  Report Type: Spontaneous
  Country: US (occurrence: US)
  Receive Date: 20151009
  Receipt Date: 20151009
  Transmission Date: 20160304
  Serious: No
  Sender: FDA-Public Use
  Company Number: US-GLAXOSMITHKLINE-US2015GSK129307

PATIENT
  Age: 60 Year
  Sex: Female

DRUGS (3)
  1. CEFTIN [Suspect]
     Active Substance: CEFUROXIME AXETIL
     Indication: SINUSITIS
     Dosage: UNK
     Dates: start: 2008, end: 2008
  2. HYZAAR [Suspect]
     Active Substance: HYDROCHLOROTHIAZIDE\LOSARTAN POTASSIUM
     Indication: HYPERTENSION
     Dosage: UNK
     Dates: start: 2000
  3. SYNTHROID [Concomitant]
     Active Substance: LEVOTHYROXINE SODIUM

REACTIONS (8)
  - Skin discolouration [Unknown]
  - Serum sickness [Unknown]
  - Throat tightness [Unknown]
  - Erythema [Unknown]
  - Pruritus [Unknown]
  - Rash [Unknown]
  - Muscle tightness [Unknown]
  - Drug hypersensitivity [Unknown]
